FAERS Safety Report 10035665 (Version 3)
Quarter: 2014Q2

REPORT INFORMATION
  Report Type: Spontaneous
  Country: HU (occurrence: None)
  Receive Date: 20140321
  Receipt Date: 20140516
  Transmission Date: 20141212
  Serious: Yes (Hospitalization, Other)
  Sender: FDA-Public Use
  Company Number: 2014-04089

PATIENT
  Age: 49 Year
  Sex: Female

DRUGS (1)
  1. ULIPRISTAL ACETATE [Suspect]
     Indication: UTERINE LEIOMYOMA
     Route: 048
     Dates: start: 20140120, end: 20140218

REACTIONS (8)
  - Uterine leiomyoma [None]
  - Abdominal pain [None]
  - Vaginal odour [None]
  - Vaginal discharge [None]
  - Endometriosis [None]
  - Bronchitis [None]
  - Respiratory tract infection [None]
  - Urinary tract infection [None]
